FAERS Safety Report 8517084 (Version 3)
Quarter: 2013Q2

REPORT INFORMATION
  Report Type: Spontaneous
  Country: US (occurrence: US)
  Receive Date: 20120417
  Receipt Date: 20130410
  Transmission Date: 20140414
  Serious: No
  Sender: FDA-Public Use
  Company Number: US-ASTRAZENECA-2011SE72590

PATIENT
  Age: 63 Year
  Sex: Female

DRUGS (2)
  1. NEXIUM [Suspect]
     Route: 048
  2. OTHER MEDICATION [Suspect]
     Route: 065

REACTIONS (4)
  - Dysphonia [Unknown]
  - Sleep disorder due to a general medical condition [Unknown]
  - Malaise [Unknown]
  - Drug dose omission [Unknown]
